FAERS Safety Report 15660304 (Version 1)
Quarter: 2018Q4

REPORT INFORMATION
  Report Type: Spontaneous
  Country: US (occurrence: US)
  Receive Date: 20181127
  Receipt Date: 20181127
  Transmission Date: 20190205
  Serious: No
  Sender: FDA-Public Use
  Company Number: US-DRREDDYS-USA/USA/18/0105353

PATIENT
  Age: 14 Year
  Sex: Female

DRUGS (1)
  1. SERNIVO [Suspect]
     Active Substance: BETAMETHASONE DIPROPIONATE
     Indication: PRODUCT USED FOR UNKNOWN INDICATION
     Dosage: 0.05 PERCENTAGE 120 ML
     Route: 065

REACTIONS (1)
  - Product use issue [Not Recovered/Not Resolved]
